FAERS Safety Report 23698187 (Version 2)
Quarter: 2024Q2

REPORT INFORMATION
  Report Type: Other
  Country: JP (occurrence: JP)
  Receive Date: 20240402
  Receipt Date: 20240419
  Transmission Date: 20240715
  Serious: Yes (Hospitalization, Other)
  Sender: FDA-Public Use
  Company Number: JP-B.Braun Medical Inc.-2155142

PATIENT
  Age: 75 Year
  Sex: Male
  Weight: 73.9 kg

DRUGS (19)
  1. ACETAMINOPHEN [Suspect]
     Active Substance: ACETAMINOPHEN
     Indication: Pain management
  2. TRAMADOL HYDROCHLORIDE [Suspect]
     Active Substance: TRAMADOL HYDROCHLORIDE
  3. ATENOLOL [Concomitant]
     Active Substance: ATENOLOL
  4. ASPIRIN [Concomitant]
     Active Substance: ASPIRIN
  5. VERAPAMIL [Concomitant]
     Active Substance: VERAPAMIL HYDROCHLORIDE
  6. LUBIPROSTONE [Concomitant]
     Active Substance: LUBIPROSTONE
  7. ITOPRIDE [Concomitant]
     Active Substance: ITOPRIDE
  8. ELOBIXIBAT [Concomitant]
     Active Substance: ELOBIXIBAT
  9. SODIUM ZIRCONIUM CYCLOSILICATE [Concomitant]
     Active Substance: SODIUM ZIRCONIUM CYCLOSILICATE
  10. CALCIUM CARBONATE [Concomitant]
     Active Substance: CALCIUM CARBONATE
  11. BICALUTAMIDE [Concomitant]
     Active Substance: BICALUTAMIDE
  12. FUROSEMIDE [Concomitant]
     Active Substance: FUROSEMIDE
  13. TAMSULOSIN [Concomitant]
     Active Substance: TAMSULOSIN
  14. FEBUXOSTAT [Concomitant]
     Active Substance: FEBUXOSTAT
  15. AZOSEMIDE [Concomitant]
     Active Substance: AZOSEMIDE
  16. ALFACALCIDOL [Concomitant]
     Active Substance: ALFACALCIDOL
  17. ATORVASTATIN [Concomitant]
     Active Substance: ATORVASTATIN
  18. FENTANYL CITRATE [Suspect]
     Active Substance: FENTANYL CITRATE
  19. OXYCODONE. [Suspect]
     Active Substance: OXYCODONE HYDROCHLORIDE

REACTIONS (1)
  - Erythema multiforme [Recovering/Resolving]
